FAERS Safety Report 4778035-9 (Version None)
Quarter: 2005Q3

REPORT INFORMATION
  Report Type: 
  Country: None (occurrence: None)
  Receive Date: 20050923
  Receipt Date: 20050923
  Transmission Date: 20060218
  Serious: Yes (Other)
  Sender: FDA-Public Use
  Company Number: None

PATIENT
  Age: 78 Year
  Sex: Male
  Weight: 84.4 kg

DRUGS (10)
  1. NIASPAN [Suspect]
  2. SIMVASTATIN [Concomitant]
  3. FINASTERIDE [Concomitant]
  4. IRBESARTAN [Concomitant]
  5. HYDROCHLOROTHIAZIDE [Concomitant]
  6. FLUNISOLIDE [Concomitant]
  7. ATENOLOL [Concomitant]
  8. LORATADINE [Concomitant]
  9. IPRATROPIUM BROMIDE [Concomitant]
  10. ALBUTEROL [Concomitant]

REACTIONS (1)
  - MYALGIA [None]
